FAERS Safety Report 9129487 (Version 2)
Quarter: 2013Q2

REPORT INFORMATION
  Report Type: Spontaneous
  Country: FR (occurrence: FR)
  Receive Date: 20130228
  Receipt Date: 20130405
  Transmission Date: 20140414
  Serious: Yes (Life-Threatening, Hospitalization)
  Sender: FDA-Public Use
  Company Number: FR-GLAXOSMITHKLINE-B0869216A

PATIENT
  Age: 79 Year
  Sex: Female
  Weight: 90 kg

DRUGS (6)
  1. ARIXTRA [Suspect]
     Indication: THROMBOPHLEBITIS
     Dosage: 7.5MG PER DAY
     Route: 058
     Dates: start: 20121219, end: 20121231
  2. PREVISCAN [Suspect]
     Indication: THROMBOPHLEBITIS
     Route: 048
     Dates: start: 20121219, end: 20121231
  3. LOXEN [Concomitant]
  4. PRAVASTATINE [Concomitant]
  5. FORADIL [Concomitant]
  6. MIFLASONA [Concomitant]

REACTIONS (10)
  - Shock haemorrhagic [Recovered/Resolved]
  - International normalised ratio increased [Recovered/Resolved]
  - Respiratory distress [Recovered/Resolved]
  - Haematoma [Recovered/Resolved with Sequelae]
  - Disturbance in attention [Unknown]
  - Metabolic acidosis [Unknown]
  - Coagulopathy [Unknown]
  - Skin ulcer [Unknown]
  - Haemoglobin decreased [None]
  - Skin graft [None]
